FAERS Safety Report 16913978 (Version 1)
Quarter: 2019Q4

REPORT INFORMATION
  Report Type: Spontaneous
  Country: US (occurrence: US)
  Receive Date: 20191014
  Receipt Date: 20191014
  Transmission Date: 20200122
  Serious: Yes (Other)
  Sender: FDA-Public Use
  Company Number: US-BAYER-2019-182951

PATIENT
  Age: 27 Year
  Sex: Female

DRUGS (2)
  1. MIRENA [Suspect]
     Active Substance: LEVONORGESTREL
     Indication: ENDOMETRIOSIS
     Dosage: 20 MCG/24HR, CONT
     Route: 015
     Dates: start: 201909, end: 2019
  2. MIRENA [Suspect]
     Active Substance: LEVONORGESTREL
     Indication: ENDOMETRIOSIS

REACTIONS (10)
  - Vulvovaginal burning sensation [Recovering/Resolving]
  - Off label use [None]
  - Medical device monitoring error [None]
  - Contraindicated device used [None]
  - Decreased appetite [Recovering/Resolving]
  - Procedural pain [Recovering/Resolving]
  - Uterine infection [Not Recovered/Not Resolved]
  - Product use in unapproved indication [None]
  - Malaise [Recovering/Resolving]
  - Post procedural fever [Not Recovered/Not Resolved]

NARRATIVE: CASE EVENT DATE: 201909
